FAERS Safety Report 5275662-X (Version None)
Quarter: 2007Q1

REPORT INFORMATION
  Report Type: 
  Country: None (occurrence: None)
  Receive Date: 20070326
  Receipt Date: 20070312
  Transmission Date: 20070707
  Serious: Yes (Death, Hospitalization)
  Sender: FDA-Public Use
  Company Number: US-SANOFI-SYNTHELABO-A03200702110

PATIENT
  Sex: Male

DRUGS (2)
  1. AMBIEN [Suspect]
     Indication: INSOMNIA
     Route: 048
     Dates: start: 20021114, end: 20050301
  2. AMBIEN [Suspect]
     Indication: DEPRESSION
     Route: 048
     Dates: start: 20021114, end: 20050301

REACTIONS (10)
  - AMNESIA [None]
  - COMPLETED SUICIDE [None]
  - DEPRESSION [None]
  - DRUG INEFFECTIVE [None]
  - DRUG WITHDRAWAL SYNDROME [None]
  - FALL [None]
  - FEELING ABNORMAL [None]
  - INCREASED APPETITE [None]
  - OVERDOSE [None]
  - SUICIDAL IDEATION [None]
